FAERS Safety Report 22009532 (Version 1)
Quarter: 2023Q1

REPORT INFORMATION
  Report Type: Other
  Country: IE (occurrence: None)
  Receive Date: 20230220
  Receipt Date: 20230220
  Transmission Date: 20230417
  Serious: No
  Sender: FDA-Public Use
  Company Number: IE-ROCHE-3289124

PATIENT
  Sex: Female

DRUGS (1)
  1. OCREVUS [Suspect]
     Active Substance: OCRELIZUMAB
     Indication: Product used for unknown indication
     Dosage: ON 16/FEB/2023, SHE ATTENDED FOR OCRELIZUMAB 600 MG.
     Route: 042
     Dates: start: 20200807

REACTIONS (2)
  - SARS-CoV-2 test positive [Recovered/Resolved]
  - Lower respiratory tract infection [Recovered/Resolved]

NARRATIVE: CASE EVENT DATE: 20221101
